FAERS Safety Report 7667235-6 (Version None)
Quarter: 2011Q3

REPORT INFORMATION
  Report Type: 
  Country: None (occurrence: None)
  Receive Date: 20110806
  Receipt Date: 20110401
  Transmission Date: 20111222
  Serious: No
  Sender: FDA-Public Use
  Company Number: US-ABBOTT-11P-163-0716461-00

PATIENT
  Sex: Male
  Weight: 88.53 kg

DRUGS (7)
  1. NIASPAN [Suspect]
     Indication: BLOOD TRIGLYCERIDES INCREASED
     Dates: start: 20110330
  2. AMLODIPINE W/BENAZEPRIL [Concomitant]
     Indication: BLOOD PRESSURE
  3. CARBAMAZEPINE [Concomitant]
     Indication: NERVOUS SYSTEM DISORDER
  4. METFORMIN HCL [Concomitant]
     Indication: PRODUCT USED FOR UNKNOWN INDICATION
  5. SIMVASTATIN [Concomitant]
     Indication: BLOOD CHOLESTEROL INCREASED
  6. NIASPAN [Suspect]
     Indication: BLOOD CHOLESTEROL INCREASED
  7. VITAMIN TAB [Concomitant]
     Indication: PRODUCT USED FOR UNKNOWN INDICATION

REACTIONS (1)
  - FLUSHING [None]
